FAERS Safety Report 25966604 (Version 1)
Quarter: 2025Q4

REPORT INFORMATION
  Report Type: Spontaneous
  Country: EU (occurrence: EU)
  Receive Date: 20251028
  Receipt Date: 20251028
  Transmission Date: 20260117
  Serious: Yes (Other)
  Sender: AUROBINDO
  Company Number: EU-AUROBINDO-AUR-APL-2019-017715

PATIENT
  Age: 59 Year
  Sex: Female

DRUGS (3)
  1. PREGABALIN [Suspect]
     Active Substance: PREGABALIN
     Indication: Fibromyalgia
     Dosage: 150 MILLIGRAM, DAILY (75 MG, BID)
     Route: 065
  2. ACETAMINOPHEN\OXYCODONE HYDROCHLORIDE [Concomitant]
     Active Substance: ACETAMINOPHEN\OXYCODONE HYDROCHLORIDE
     Indication: Product used for unknown indication
     Dosage: UNK
     Route: 065
  3. MORPHINE [Concomitant]
     Active Substance: MORPHINE
     Indication: Product used for unknown indication
     Dosage: UNK
     Route: 065

REACTIONS (8)
  - Visual acuity reduced [Unknown]
  - Back pain [Unknown]
  - Impaired driving ability [Unknown]
  - Foreign body in eye [Unknown]
  - Visual impairment [Unknown]
  - Blindness [Recovered/Resolved]
  - Colour blindness acquired [Recovered/Resolved]
  - Cataract [Recovered/Resolved]
